FAERS Safety Report 16471440 (Version 1)
Quarter: 2019Q2

REPORT INFORMATION
  Report Type: Spontaneous
  Country: FR (occurrence: FR)
  Receive Date: 20190624
  Receipt Date: 20190624
  Transmission Date: 20190711
  Serious: Yes (Other)
  Sender: FDA-Public Use
  Company Number: FR-MYLANLABS-2019M1059071

PATIENT
  Age: 73 Year
  Sex: Male
  Weight: 61 kg

DRUGS (7)
  1. SERESTA [Suspect]
     Active Substance: OXAZEPAM
     Indication: ANXIETY
     Dosage: 10 MILLIGRAM, QD
     Route: 048
     Dates: start: 20190215
  2. LOVENOX [Suspect]
     Active Substance: ENOXAPARIN SODIUM
     Indication: THROMBOSIS PROPHYLAXIS
     Dosage: 0.4 MILLILITER, QD
     Route: 065
     Dates: start: 20190207, end: 20190226
  3. RIFADINE                           /00146901/ [Suspect]
     Active Substance: RIFAMPIN
     Indication: ENDOCARDITIS
     Dosage: 1200 MILLIGRAM, QD
     Route: 048
     Dates: start: 20190201
  4. KARDEGIC [Suspect]
     Active Substance: ASPIRIN DL-LYSINE
     Indication: PRODUCT USED FOR UNKNOWN INDICATION
     Dosage: 75 MILLIGRAM, QD
     Route: 048
     Dates: start: 20190123
  5. EPINITRIL 5 MG/24 H TRANSDERMAL PATCH. [Suspect]
     Active Substance: NITROGLYCERIN
     Indication: PRODUCT USED FOR UNKNOWN INDICATION
     Dosage: 5 MILLIGRAM, QD
     Route: 062
     Dates: start: 20190216
  6. ORBENINE [Suspect]
     Active Substance: CLOXACILLIN SODIUM
     Indication: ENDOCARDITIS
     Dosage: 12 GRAM, QD
     Route: 042
     Dates: start: 20190124, end: 20190304
  7. XATRAL                             /00975302/ [Suspect]
     Active Substance: ALFUZOSIN HYDROCHLORIDE
     Indication: BENIGN PROSTATIC HYPERPLASIA
     Dosage: 10 MILLIGRAM, QD
     Route: 048
     Dates: start: 20190215

REACTIONS (1)
  - Thrombocytopenia [Not Recovered/Not Resolved]

NARRATIVE: CASE EVENT DATE: 20190225
